FAERS Safety Report 8924064 (Version 2)
Quarter: 2012Q4

REPORT INFORMATION
  Report Type: 
  Country: US (occurrence: US)
  Receive Date: 20121126
  Receipt Date: 20121128
  Transmission Date: 20130627
  Serious: Yes (Other)
  Sender: FDA-Public Use
  Company Number: PHHY2012US106049

PATIENT
  Age: 56 Year
  Sex: Male

DRUGS (2)
  1. TRIAMCINOLONE [Suspect]
     Indication: OSTEOARTHRITIS
  2. LIDOCAINE [Concomitant]
     Indication: ARTHRALGIA

REACTIONS (3)
  - Chorioretinopathy [Recovered/Resolved]
  - Deposit eye [Recovered/Resolved]
  - Visual acuity reduced [Recovered/Resolved]
